FAERS Safety Report 25752991 (Version 1)
Quarter: 2025Q3

REPORT INFORMATION
  Report Type: Spontaneous
  Country: CA (occurrence: CA)
  Receive Date: 20250902
  Receipt Date: 20250902
  Transmission Date: 20251021
  Serious: Yes (Hospitalization, Other)
  Sender: ASTELLAS
  Company Number: CA-ASTELLAS-2025-AER-046148

PATIENT
  Age: 62 Year
  Sex: Male

DRUGS (9)
  1. TACROLIMUS [Interacting]
     Active Substance: TACROLIMUS
     Indication: Liver transplant
     Route: 065
     Dates: start: 2022, end: 2022
  2. TACROLIMUS [Interacting]
     Active Substance: TACROLIMUS
     Route: 065
     Dates: start: 2022
  3. RIFAMPIN [Interacting]
     Active Substance: RIFAMPIN
     Indication: Pulmonary tuberculosis
     Route: 065
     Dates: start: 2022, end: 2022
  4. RIFAMPIN [Interacting]
     Active Substance: RIFAMPIN
     Indication: Tuberculous pleurisy
  5. RIFAMPIN [Interacting]
     Active Substance: RIFAMPIN
     Indication: Tuberculosis liver
  6. LINEZOLID [Interacting]
     Active Substance: LINEZOLID
     Indication: Pulmonary tuberculosis
     Route: 065
     Dates: start: 2022, end: 2022
  7. LINEZOLID [Interacting]
     Active Substance: LINEZOLID
     Indication: Tuberculous pleurisy
     Route: 065
     Dates: start: 2022
  8. LINEZOLID [Interacting]
     Active Substance: LINEZOLID
     Indication: Tuberculosis liver
  9. MYCOPHENOLATE MOFETIL [Concomitant]
     Active Substance: MYCOPHENOLATE MOFETIL
     Indication: Liver transplant
     Route: 065
     Dates: start: 2022, end: 2022

REACTIONS (9)
  - Pulmonary tuberculosis [Recovered/Resolved]
  - Tuberculous pleurisy [Recovered/Resolved]
  - Tuberculosis liver [Recovered/Resolved]
  - Respiratory disorder [Unknown]
  - Condition aggravated [Unknown]
  - Respiratory failure [Unknown]
  - Anaemia [Recovering/Resolving]
  - Drug interaction [Unknown]
  - Drug interaction [Unknown]

NARRATIVE: CASE EVENT DATE: 20220101
